FAERS Safety Report 15262518 (Version 3)
Quarter: 2018Q4

REPORT INFORMATION
  Report Type: Spontaneous
  Country: US (occurrence: US)
  Receive Date: 20180809
  Receipt Date: 20181029
  Transmission Date: 20190204
  Serious: Yes (Other)
  Sender: FDA-Public Use
  Company Number: US-PRINSTON PHARMACEUTICAL INC.-2018PRN00703

PATIENT
  Sex: Female
  Weight: 74.83 kg

DRUGS (10)
  1. LOSARTAN POTASSIUM. [Suspect]
     Active Substance: LOSARTAN POTASSIUM
     Dosage: UNK
     Dates: start: 2018, end: 2018
  2. BABY ASPIRIN [Concomitant]
     Active Substance: ASPIRIN
  3. GABAPENTIN. [Concomitant]
     Active Substance: GABAPENTIN
  4. SULFASALAZINE EC [Concomitant]
     Active Substance: SULFASALAZINE
  5. METHYLPREDNISOLONE. [Concomitant]
     Active Substance: METHYLPREDNISOLONE
  6. LEVOTHYROXINE. [Concomitant]
     Active Substance: LEVOTHYROXINE
  7. ROSUVASTATIN. [Concomitant]
     Active Substance: ROSUVASTATIN
  8. VALSARTAN. [Suspect]
     Active Substance: VALSARTAN
     Indication: HYPERTENSION
     Dosage: 320 MG, 1X/DAY (WITH WATER)
     Route: 048
     Dates: start: 20040101, end: 201808
  9. MELOXICAM. [Concomitant]
     Active Substance: MELOXICAM
  10. ATORVASTATIN [Concomitant]
     Active Substance: ATORVASTATIN

REACTIONS (10)
  - Osteoporosis [Recovering/Resolving]
  - Nausea [Recovering/Resolving]
  - Abdominal discomfort [Recovering/Resolving]
  - Product substitution issue [Recovered/Resolved]
  - Concussion [Recovering/Resolving]
  - Dizziness [Recovering/Resolving]
  - Drug ineffective [Recovered/Resolved]
  - Anaemia [Unknown]
  - Rheumatoid arthritis [Recovering/Resolving]
  - Blood pressure fluctuation [Recovering/Resolving]

NARRATIVE: CASE EVENT DATE: 2015
